FAERS Safety Report 7846437-X (Version None)
Quarter: 2011Q4

REPORT INFORMATION
  Report Type: 
  Country: None (occurrence: None)
  Receive Date: 20111025
  Receipt Date: 20111025
  Transmission Date: 20120403
  Serious: Yes (Life-Threatening)
  Sender: FDA-Public Use
  Company Number: None

PATIENT
  Age: 77 Year
  Sex: Male

DRUGS (1)
  1. TRIMETHOPRIM [Suspect]
     Indication: TRANSURETHRAL BLADDER RESECTION
     Dosage: 100 MG`
     Route: 048
     Dates: start: 20110923, end: 20110923

REACTIONS (1)
  - STEVENS-JOHNSON SYNDROME [None]
